FAERS Safety Report 5276202-1 (Version None)
Quarter: 2007Q1

REPORT INFORMATION
  Report Type: 
  Country: None (occurrence: None)
  Receive Date: 20070322
  Receipt Date: 20070322
  Transmission Date: 20070707
  Serious: Yes (Other)
  Sender: FDA-Public Use
  Company Number: None

PATIENT
  Sex: Female
  Weight: 72.5755 kg

DRUGS (1)
  1. MAGNEVIST [Suspect]
     Indication: BACK PAIN
     Dosage: 15ML ONCE IV
     Route: 042
     Dates: start: 20070320, end: 20070320

REACTIONS (3)
  - ERYTHEMA [None]
  - INDURATION [None]
  - OEDEMA PERIPHERAL [None]
